FAERS Safety Report 6943715-3 (Version None)
Quarter: 2010Q3

REPORT INFORMATION
  Report Type: 
  Country: None (occurrence: None)
  Receive Date: 20100826
  Receipt Date: 20100820
  Transmission Date: 20110219
  Serious: Yes (Death)
  Sender: FDA-Public Use
  Company Number: A0780806A

PATIENT
  Age: 68 Year
  Sex: Male
  Weight: 139 kg

DRUGS (12)
  1. AVANDIA [Suspect]
     Dosage: 8MG PER DAY
     Route: 048
     Dates: start: 20000524, end: 20070704
  2. FLOMAX [Concomitant]
  3. SPIRONOLACTONE [Concomitant]
  4. INDAPAMIDE [Concomitant]
  5. NASONEX [Concomitant]
  6. ATENOLOL [Concomitant]
  7. CELEBREX [Concomitant]
  8. VIAGRA [Concomitant]
  9. FOSINOPRIL SODIUM [Concomitant]
  10. LIPITOR [Concomitant]
  11. METFORMIN HCL [Concomitant]
  12. PEPCID [Concomitant]

REACTIONS (2)
  - MYOCARDIAL INFARCTION [None]
  - SUDDEN CARDIAC DEATH [None]
